FAERS Safety Report 4371445-3 (Version None)
Quarter: 2004Q2

REPORT INFORMATION
  Report Type: 
  Country: None (occurrence: None)
  Receive Date: 20040602
  Receipt Date: 20040520
  Transmission Date: 20050107
  Serious: Yes (Hospitalization)
  Sender: FDA-Public Use
  Company Number: US-JNJFOC-20040504809

PATIENT
  Age: 72 Year
  Sex: Female

DRUGS (6)
  1. INFLIXIMAB (INFLIXIMAB, RECOMBINANT) LYOPHILIZED POWDER [Suspect]
     Indication: RHEUMATOID ARTHRITIS
     Dosage: 400 MG, 1 IN 6 WEEK, INTRAVENOUS
     Route: 042
     Dates: start: 20000327, end: 20030801
  2. INFLIXIMAB (INFLIXIMAB, RECOMBINANT) LYOPHILIZED POWDER [Suspect]
     Indication: RHEUMATOID ARTHRITIS
     Dosage: 400 MG, 1 IN 6 WEEK, INTRAVENOUS
     Route: 042
     Dates: start: 20040201
  3. ZANTAC [Concomitant]
  4. LOMOTOL (LOMOTIL) [Concomitant]
  5. CALCIUM [Concomitant]
  6. LOTREL [Concomitant]

REACTIONS (5)
  - AORTIC STENOSIS [None]
  - BRADYCARDIA [None]
  - CARDIAC FAILURE CONGESTIVE [None]
  - CORONARY ARTERY STENOSIS [None]
  - POST PROCEDURAL COMPLICATION [None]
